FAERS Safety Report 14142285 (Version 2)
Quarter: 2018Q1

REPORT INFORMATION
  Report Type: Spontaneous
  Country: RU (occurrence: RU)
  Receive Date: 20171030
  Receipt Date: 20180301
  Transmission Date: 20180508
  Serious: Yes (Other)
  Sender: FDA-Public Use
  Company Number: RU-009507513-1710RUS014982

PATIENT
  Age: 45 Year
  Sex: Male

DRUGS (2)
  1. TEDIZOLID PHOSPHATE [Suspect]
     Active Substance: TEDIZOLID PHOSPHATE
     Indication: PRODUCT USED FOR UNKNOWN INDICATION
     Dosage: 200 MG, QD
     Dates: start: 20170616, end: 20170627
  2. CEFTAZIDIME. [Concomitant]
     Active Substance: CEFTAZIDIME
     Dosage: 2 G, TID
     Dates: start: 20170616, end: 20170627

REACTIONS (5)
  - Necrosis [Unknown]
  - Suture rupture [Unknown]
  - Drug ineffective [Unknown]
  - Wound secretion [Unknown]
  - Incorrect drug administration duration [Unknown]
